FAERS Safety Report 7761824-6 (Version None)
Quarter: 2011Q3

REPORT INFORMATION
  Report Type: 
  Country: None (occurrence: None)
  Receive Date: 20110915
  Receipt Date: 20110908
  Transmission Date: 20111222
  Serious: Yes (Death)
  Sender: FDA-Public Use
  Company Number: DKLU1072996

PATIENT
  Age: 36 Year
  Sex: Female

DRUGS (6)
  1. COSMEGEN [Suspect]
     Indication: GESTATIONAL TROPHOBLASTIC TUMOUR
  2. CYCLOPHOSPHAMIDE [Suspect]
     Indication: GESTATIONAL TROPHOBLASTIC TUMOUR
  3. VINCRISTINE [Suspect]
     Indication: GESTATIONAL TROPHOBLASTIC TUMOUR
  4. METHOTREXATE [Suspect]
     Indication: GESTATIONAL TROPHOBLASTIC TUMOUR
  5. ETOPOSIDE [Suspect]
     Indication: GESTATIONAL TROPHOBLASTIC TUMOUR
  6. CISPLATIN [Suspect]
     Indication: GESTATIONAL TROPHOBLASTIC TUMOUR

REACTIONS (3)
  - PYREXIA [None]
  - LEUKOPENIA [None]
  - NO THERAPEUTIC RESPONSE [None]
